FAERS Safety Report 20096365 (Version 2)
Quarter: 2022Q1

REPORT INFORMATION
  Report Type: Spontaneous
  Country: US (occurrence: US)
  Receive Date: 20211122
  Receipt Date: 20220104
  Transmission Date: 20220424
  Serious: No
  Sender: FDA-Public Use
  Company Number: US-drreddys-SPO/USA/21/0143761

PATIENT
  Age: 39 Year
  Sex: Male

DRUGS (4)
  1. RISPERIDONE [Suspect]
     Active Substance: RISPERIDONE
     Indication: Negative thoughts
  2. RISPERIDONE [Suspect]
     Active Substance: RISPERIDONE
     Indication: Hallucination, tactile
     Dosage: 1 MG AT BEDTIME
  3. RISPERIDONE [Suspect]
     Active Substance: RISPERIDONE
     Indication: Hallucination, auditory
  4. RISPERIDONE [Suspect]
     Active Substance: RISPERIDONE
     Indication: Paranoia

REACTIONS (3)
  - Musculoskeletal stiffness [Recovered/Resolved]
  - Insomnia [Unknown]
  - Extrapyramidal disorder [Recovered/Resolved]
